FAERS Safety Report 13013508 (Version 1)
Quarter: 2016Q4

REPORT INFORMATION
  Report Type: Spontaneous
  Country: US (occurrence: US)
  Receive Date: 20161209
  Receipt Date: 20161209
  Transmission Date: 20170207
  Serious: No
  Sender: FDA-Public Use
  Company Number: US-ASTRAZENECA-2016SF27303

PATIENT
  Sex: Male
  Weight: 86.2 kg

DRUGS (13)
  1. BRILINTA [Suspect]
     Active Substance: TICAGRELOR
     Indication: STENT PLACEMENT
     Route: 048
     Dates: start: 20161025
  2. PANTOPRAZOLE [Concomitant]
     Active Substance: PANTOPRAZOLE SODIUM
     Indication: ACID BASE BALANCE
     Route: 048
     Dates: start: 2014
  3. TYLENOL [Concomitant]
     Active Substance: ACETAMINOPHEN
     Indication: BACK PAIN
     Dosage: 500.0MG AS REQUIRED
     Route: 048
  4. METOPROLOL TARTRATE. [Suspect]
     Active Substance: METOPROLOL TARTRATE
     Indication: BLOOD PRESSURE ABNORMAL
     Dosage: HALF OF 50MG TABLET, UNKNOWN
     Route: 048
     Dates: start: 20161025
  5. BRILINTA [Suspect]
     Active Substance: TICAGRELOR
     Indication: ACUTE CORONARY SYNDROME
     Route: 048
     Dates: start: 20161025
  6. WARFARIN [Concomitant]
     Active Substance: WARFARIN
     Indication: ANTICOAGULANT THERAPY
     Route: 048
     Dates: start: 2013
  7. NIACIN. [Concomitant]
     Active Substance: NIACIN
     Indication: BLOOD TRIGLYCERIDES INCREASED
     Route: 048
     Dates: start: 2006
  8. PROBIOTIC [Concomitant]
     Active Substance: PROBIOTICS NOS
     Indication: DIARRHOEA
     Dosage: TWO TIMES A DAY
     Route: 048
     Dates: start: 2013
  9. PRAVASTATIN. [Concomitant]
     Active Substance: PRAVASTATIN
     Indication: BLOOD CHOLESTEROL ABNORMAL
     Route: 048
     Dates: start: 2014
  10. ASPIRIN. [Concomitant]
     Active Substance: ASPIRIN
     Route: 048
     Dates: start: 1980
  11. MULTIPLE VITAMIN [Concomitant]
     Active Substance: VITAMINS
     Indication: BLOOD IRON INCREASED
     Dosage: 1 TAB DAILY
     Route: 048
     Dates: start: 2015
  12. CALCIUM WITH VITAMIN D [Concomitant]
     Active Substance: CALCIUM\VITAMIN D
     Route: 048
     Dates: start: 2006
  13. TYLENOL [Concomitant]
     Active Substance: ACETAMINOPHEN
     Indication: MYALGIA
     Dosage: 500.0MG AS REQUIRED
     Route: 048

REACTIONS (5)
  - Body height decreased [Unknown]
  - Intentional product misuse [Unknown]
  - Muscle spasms [Unknown]
  - Gait disturbance [Unknown]
  - Blood pressure abnormal [Unknown]
